FAERS Safety Report 6702423-4 (Version None)
Quarter: 2010Q2

REPORT INFORMATION
  Report Type: 
  Country: None (occurrence: None)
  Receive Date: 20100429
  Receipt Date: 20100420
  Transmission Date: 20101027
  Serious: Yes (Hospitalization)
  Sender: FDA-Public Use
  Company Number: A0856096A

PATIENT
  Age: 34 Year
  Sex: Male
  Weight: 119 kg

DRUGS (3)
  1. LOVAZA [Suspect]
     Route: 048
     Dates: start: 20100407
  2. ARIXTRA [Suspect]
     Indication: DEEP VEIN THROMBOSIS
     Dosage: 10MG UNKNOWN
     Route: 058
  3. WARFARIN SODIUM [Concomitant]
     Dates: end: 20100407

REACTIONS (5)
  - DEEP VEIN THROMBOSIS [None]
  - ECCHYMOSIS [None]
  - EPISTAXIS [None]
  - INTERNATIONAL NORMALISED RATIO INCREASED [None]
  - PAIN IN EXTREMITY [None]
